FAERS Safety Report 23579063 (Version 1)
Quarter: 2024Q1

REPORT INFORMATION
  Report Type: Spontaneous
  Country: PT (occurrence: PT)
  Receive Date: 20240229
  Receipt Date: 20240229
  Transmission Date: 20240410
  Serious: Yes (Other)
  Sender: FDA-Public Use
  Company Number: PT-GILEAD-2018-0313620

PATIENT
  Age: 72 Year
  Sex: Male

DRUGS (2)
  1. AMPHOTERICIN B [Suspect]
     Active Substance: AMPHOTERICIN B
     Indication: Bronchopulmonary aspergillosis
     Dosage: 50 MG, UNKNOWN FREQ. (50 MG PLUS 20 CC OF GELATIN SOLUTION (PERCUTANEOUS INTRA-CAVITY INSTILLATION))
     Route: 017
  2. LIDOCAINE [Concomitant]
     Active Substance: LIDOCAINE
     Indication: Product used for unknown indication
     Dosage: UNK UNK, UNKNOWN FREQ.
     Route: 065

REACTIONS (3)
  - Pulmonary cavitation [Unknown]
  - Haemoptysis [Unknown]
  - Off label use [Unknown]
